FAERS Safety Report 11932789 (Version 2)
Quarter: 2016Q1

REPORT INFORMATION
  Report Type: Report from Study
  Country: DE (occurrence: DE)
  Receive Date: 20160120
  Receipt Date: 20160308
  Transmission Date: 20160526
  Serious: Yes (Death)
  Sender: FDA-Public Use
  Company Number: DE-ACTELION-A-NJ2016-130213

PATIENT
  Age: 75 Year
  Sex: Male
  Weight: 66 kg

DRUGS (13)
  1. REVATIO [Suspect]
     Active Substance: SILDENAFIL CITRATE
     Indication: PULMONARY ARTERIAL HYPERTENSION
     Dosage: 20 MG, UNK
     Route: 048
  2. VENTAVIS [Suspect]
     Active Substance: ILOPROST
     Indication: PULMONARY ARTERIAL HYPERTENSION
     Dosage: 5 MCG, 6X/D
     Route: 055
     Dates: start: 20150911
  3. DIGITOXIN [Concomitant]
     Active Substance: DIGITOXIN
  4. INEGY [Concomitant]
     Active Substance: EZETIMIBE\SIMVASTATIN
  5. CIPRALEX [Concomitant]
     Active Substance: ESCITALOPRAM OXALATE
  6. ALNA [Concomitant]
     Active Substance: TAMSULOSIN HYDROCHLORIDE
  7. APIXABAN [Concomitant]
     Active Substance: APIXABAN
  8. DREISAFER [Concomitant]
  9. TORSEMIDE. [Concomitant]
     Active Substance: TORSEMIDE
  10. FINASTERIDE. [Concomitant]
     Active Substance: FINASTERIDE
  11. PANTOZOL [Concomitant]
     Active Substance: PANTOPRAZOLE SODIUM
  12. OPSUMIT [Suspect]
     Active Substance: MACITENTAN
     Indication: PULMONARY ARTERIAL HYPERTENSION
     Dosage: 10 MG, QD
     Route: 048
  13. CARVEDILOL. [Concomitant]
     Active Substance: CARVEDILOL

REACTIONS (1)
  - Death [Fatal]

NARRATIVE: CASE EVENT DATE: 20151214
